FAERS Safety Report 14381517 (Version 2)
Quarter: 2018Q1

REPORT INFORMATION
  Report Type: Spontaneous
  Country: FR (occurrence: FR)
  Receive Date: 20180112
  Receipt Date: 20180205
  Transmission Date: 20180509
  Serious: Yes (Other)
  Sender: FDA-Public Use
  Company Number: FR-MYLANLABS-2018M1002497

PATIENT
  Age: 59 Year
  Sex: Female

DRUGS (10)
  1. KETAMINE [Suspect]
     Active Substance: KETAMINE
     Dosage: UNK
     Route: 042
  2. KETAMINE [Suspect]
     Active Substance: KETAMINE
     Dosage: UNK
     Route: 042
  3. SUFENTANIL [Suspect]
     Active Substance: SUFENTANIL
     Indication: ANAESTHESIA
     Dosage: UNK
     Route: 042
  4. KETAMINE [Suspect]
     Active Substance: KETAMINE
     Indication: ANAESTHESIA
     Dosage: UNK
     Route: 042
     Dates: start: 20170503, end: 20170503
  5. NIMBEX [Suspect]
     Active Substance: CISATRACURIUM BESYLATE
     Dosage: 2 MG/ML, UNK
  6. CEFAZOLIN [Suspect]
     Active Substance: CEFAZOLIN
     Indication: ANAESTHESIA
     Dosage: UNK
     Route: 042
  7. NIMBEX [Suspect]
     Active Substance: CISATRACURIUM BESYLATE
     Indication: NEUROMUSCULAR BLOCKING THERAPY
     Dosage: UNK
     Route: 042
  8. PROPOFOL LIPURO [Suspect]
     Active Substance: PROPOFOL
     Dosage: UNK
     Route: 042
  9. NIMBEX [Suspect]
     Active Substance: CISATRACURIUM BESYLATE
     Dosage: UNK
     Dates: start: 20170503, end: 20170503
  10. PROPOFOL LIPURO [Suspect]
     Active Substance: PROPOFOL
     Indication: ANAESTHESIA
     Dosage: UNK
     Route: 042

REACTIONS (1)
  - Anaphylactic reaction [Recovered/Resolved]

NARRATIVE: CASE EVENT DATE: 20170503
